FAERS Safety Report 16083732 (Version 1)
Quarter: 2019Q2

REPORT INFORMATION
  Report Type: Spontaneous
  Country: US (occurrence: US)
  Receive Date: 20190315
  Receipt Date: 20190315
  Transmission Date: 20190711
  Serious: Yes (Other)
  Sender: FDA-Public Use
  Company Number: None

PATIENT
  Age: 48 Year
  Weight: 48.15 kg

DRUGS (2)
  1. DIOCLOFENAC SODIUM OPHTHALMIC .1% BY BAUSCH AND LOMB NDC 24208-457-05 [Suspect]
     Active Substance: DICLOFENAC SODIUM
     Indication: CONJUNCTIVITIS
     Dosage: QUANTITY:1 DROP(S);OTHER ROUTE:IN EYES?
     Dates: start: 20190306, end: 20190312
  2. MULTIVITAMIN [Concomitant]
     Active Substance: VITAMINS

REACTIONS (3)
  - Pain in extremity [None]
  - Muscular weakness [None]
  - Myalgia [None]

NARRATIVE: CASE EVENT DATE: 20190307
